FAERS Safety Report 8030243-X (Version None)
Quarter: 2012Q1

REPORT INFORMATION
  Report Type: 
  Country: None (occurrence: None)
  Receive Date: 20120109
  Receipt Date: 20111230
  Transmission Date: 20120608
  Serious: Yes (Hospitalization)
  Sender: FDA-Public Use
  Company Number: CA-ELI_LILLY_AND_COMPANY-CA201201000602

PATIENT
  Age: 78 Year
  Sex: Female

DRUGS (11)
  1. VITAMIN D [Concomitant]
  2. MICARDIS [Concomitant]
  3. FORTEO [Suspect]
     Indication: OSTEOPOROSIS
     Dosage: 20 UG, QD
     Route: 058
     Dates: start: 20111020
  4. EZETIMIBE [Concomitant]
  5. ESCITALOPRAM [Concomitant]
  6. TRAZODONE HCL [Concomitant]
  7. DOMPERIDONE [Concomitant]
  8. CALCIUM ACETATE [Concomitant]
  9. AMLODIPINE [Concomitant]
  10. JANUMET [Concomitant]
  11. CRESTOR [Concomitant]

REACTIONS (2)
  - INTESTINAL OBSTRUCTION [None]
  - ABDOMINAL PAIN [None]
